FAERS Safety Report 8880562 (Version 1)
Quarter: 2012Q4

REPORT INFORMATION
  Report Type: 
  Country: US (occurrence: US)
  Receive Date: 20121101
  Receipt Date: 20121101
  Transmission Date: 20130627
  Serious: Yes (Hospitalization)
  Sender: FDA-Public Use
  Company Number: US-ASTRAZENECA-2012SE81477

PATIENT
  Age: 55 Year
  Sex: Male

DRUGS (6)
  1. BRILINTA [Suspect]
     Route: 048
  2. PRINIVIL [Suspect]
     Route: 048
  3. LOPRESSOR [Suspect]
     Indication: MYOCARDIAL INFARCTION
     Route: 048
  4. ASPIRIN [Concomitant]
     Indication: MYOCARDIAL INFARCTION
     Route: 048
  5. PRAVASTATIN [Concomitant]
     Route: 048
  6. ZANTAC [Concomitant]
     Route: 048

REACTIONS (3)
  - Dyspnoea [Unknown]
  - Acute myocardial infarction [Unknown]
  - Ischaemic cardiomyopathy [Unknown]
